FAERS Safety Report 6343718-6 (Version None)
Quarter: 2009Q3

REPORT INFORMATION
  Report Type: 
  Country: None (occurrence: None)
  Receive Date: 20090821
  Receipt Date: 20090528
  Transmission Date: 20100115
  Serious: No
  Sender: FDA-Public Use
  Company Number: 8047056

PATIENT
  Age: 62 Year
  Sex: Male
  Weight: 56.9 kg

DRUGS (6)
  1. CIMZIA [Suspect]
     Indication: CROHN'S DISEASE
     Dosage: 400 MG SC
     Route: 058
     Dates: start: 20090226
  2. CARDIZEM [Concomitant]
  3. SPIRONOLACTONE [Concomitant]
  4. IMITREX [Concomitant]
  5. BENADRYL [Concomitant]
  6. SUDAFED 12 HOUR [Concomitant]

REACTIONS (2)
  - BLOOD PRESSURE DECREASED [None]
  - INJECTION SITE HAEMORRHAGE [None]
